FAERS Safety Report 4827215-2 (Version None)
Quarter: 2005Q4

REPORT INFORMATION
  Report Type: 
  Country: None (occurrence: None)
  Receive Date: 20051014
  Receipt Date: 20050824
  Transmission Date: 20060501
  Serious: No
  Sender: FDA-Public Use
  Company Number: 2005SP002486

PATIENT
  Age: 54 Year
  Sex: Female
  Weight: 81.6475 kg

DRUGS (3)
  1. LUNESTA [Suspect]
     Dosage: 2 MG; HS; ORAL
     Route: 048
     Dates: start: 20050821
  2. EFFEXOR [Concomitant]
  3. ALLEGRA [Concomitant]

REACTIONS (3)
  - DRUG INEFFECTIVE [None]
  - FEELING ABNORMAL [None]
  - INITIAL INSOMNIA [None]
